FAERS Safety Report 6955229-5 (Version None)
Quarter: 2010Q3

REPORT INFORMATION
  Report Type: 
  Country: None (occurrence: None)
  Receive Date: 20100830
  Receipt Date: 20100817
  Transmission Date: 20110219
  Serious: Yes (Other)
  Sender: FDA-Public Use
  Company Number: US-ELI_LILLY_AND_COMPANY-US201008004907

PATIENT
  Age: 54 Year
  Sex: Male

DRUGS (1)
  1. STRATTERA [Suspect]
     Indication: BIPOLAR DISORDER
     Dosage: 18 MG, UNKNOWN

REACTIONS (6)
  - ADVERSE EVENT [None]
  - AGITATION [None]
  - DYSPHAGIA [None]
  - HOMICIDAL IDEATION [None]
  - OFF LABEL USE [None]
  - VOMITING PROJECTILE [None]
